FAERS Safety Report 21077126 (Version 1)
Quarter: 2022Q3

REPORT INFORMATION
  Report Type: Spontaneous
  Country: DE (occurrence: DE)
  Receive Date: 20220713
  Receipt Date: 20220713
  Transmission Date: 20221027
  Serious: Yes (Other)
  Sender: FDA-Public Use
  Company Number: None

PATIENT

DRUGS (2)
  1. CYTOTEC [Suspect]
     Active Substance: MISOPROSTOL
     Indication: Labour induction
     Dosage: 1. INTAKE 25 MCG 04OCT15 01:00, 2. INTAKE 50 MCG 04OCT 9:00
     Route: 064
     Dates: start: 20151004
  2. CYTOTEC [Suspect]
     Active Substance: MISOPROSTOL
     Indication: Failed trial of labour

REACTIONS (3)
  - Foetal exposure during delivery [Unknown]
  - Foetal heart rate abnormal [Unknown]
  - Foetal heart rate decreased [Unknown]

NARRATIVE: CASE EVENT DATE: 20151004
